FAERS Safety Report 6266640-2 (Version None)
Quarter: 2009Q3

REPORT INFORMATION
  Report Type: 
  Country: None (occurrence: None)
  Receive Date: 20090710
  Receipt Date: 20090209
  Transmission Date: 20100115
  Serious: Yes (Other)
  Sender: FDA-Public Use
  Company Number: ADE2009-0689

PATIENT
  Age: 81 Year
  Sex: Female
  Weight: 62.5 kg

DRUGS (1)
  1. METFORMIN HCL [Suspect]

REACTIONS (3)
  - DRUG HYPERSENSITIVITY [None]
  - MUSCLE SPASMS [None]
  - RESPIRATORY DISORDER [None]
